FAERS Safety Report 7657739-4 (Version None)
Quarter: 2011Q3

REPORT INFORMATION
  Report Type: 
  Country: None (occurrence: None)
  Receive Date: 20110804
  Receipt Date: 20110614
  Transmission Date: 20111222
  Serious: No
  Sender: FDA-Public Use
  Company Number: US-BAYER-2011-052603

PATIENT

DRUGS (2)
  1. NAPROXEN SODIUM [Suspect]
     Dosage: EVERY 4-6 HOURS
     Route: 048
  2. IBUPROFEN [Concomitant]

REACTIONS (2)
  - UNEVALUABLE EVENT [None]
  - NO ADVERSE EVENT [None]
